FAERS Safety Report 11291839 (Version 2)
Quarter: 2015Q4

REPORT INFORMATION
  Report Type: Spontaneous
  Country: ES (occurrence: ES)
  Receive Date: 20150722
  Receipt Date: 20151218
  Transmission Date: 20160304
  Serious: Yes (Other)
  Sender: FDA-Public Use
  Company Number: ES-WATSON-2015-14733

PATIENT
  Age: 13 Year
  Sex: Male

DRUGS (5)
  1. AMPICILLIN (UNKNOWN) [Suspect]
     Active Substance: AMPICILLIN
     Indication: SKIN TEST
     Dosage: UNK
     Route: 023
  2. LINEZOLID (UNKNOWN) [Suspect]
     Active Substance: LINEZOLID
     Indication: PERITONITIS
     Dosage: UNK
     Route: 065
  3. PIPERACILLIN AND TAZOBACTAM [Suspect]
     Active Substance: PIPERACILLIN SODIUM\TAZOBACTAM SODIUM
     Indication: PERITONITIS
     Dosage: UNK
     Route: 065
  4. FLUCONAZOLE (UNKNOWN) [Suspect]
     Active Substance: FLUCONAZOLE
     Indication: PERITONITIS
     Dosage: UNK
     Route: 042
  5. AMOXICILLIN. [Suspect]
     Active Substance: AMOXICILLIN
     Indication: SKIN TEST
     Dosage: UNK
     Route: 023

REACTIONS (2)
  - Drug reaction with eosinophilia and systemic symptoms [Recovered/Resolved]
  - Drug cross-reactivity [Unknown]
